FAERS Safety Report 18041681 (Version 1)
Quarter: 2020Q3

REPORT INFORMATION
  Report Type: Spontaneous
  Country: US (occurrence: US)
  Receive Date: 20200720
  Receipt Date: 20200720
  Transmission Date: 20201103
  Serious: No
  Sender: FDA-Public Use
  Company Number: US-CIPLA LTD.-2020US04531

PATIENT

DRUGS (12)
  1. COBICISTAT;ELVITEGRAVIR;EMTRICITABINE;TENOFOVIR [Suspect]
     Active Substance: COBICISTAT\ELVITEGRAVIR\EMTRICITABINE\TENOFOVIR
     Indication: ANTIRETROVIRAL THERAPY
     Dosage: UNK, 1 COURSE, AT A TOTAL DAILY DOSE OF 1, FIRST TRIMESTER
     Route: 048
  2. ZIDOVUDINE. [Suspect]
     Active Substance: ZIDOVUDINE
     Dosage: UNK, SECOND COURSE, AT A DAILY DOSE OF 1, THIRD TRIMESTER FOR { 1 WEEK
     Route: 042
  3. EMTRICITABINE/TENOFOVIR [Suspect]
     Active Substance: EMTRICITABINE\TENOFOVIR
     Dosage: UNK, SECOND COURSE, SECOND TIMESTER, AT A TOTAL DAILY DOSE OF ONE
     Route: 048
  4. ATAZANAVIR. [Suspect]
     Active Substance: ATAZANAVIR
     Indication: ANTIRETROVIRAL THERAPY
     Dosage: UNK, 1 COURSE, FIRST TRIMESTER, AT A TOTAL DAILY DOSE OF 1
     Route: 048
  5. ATAZANAVIR. [Suspect]
     Active Substance: ATAZANAVIR
     Dosage: UNK, THIRD COURSE, THIRD TRIMESTER, AT A TOTAL DAILY DOSE OF 800
     Route: 048
  6. RITONAVIR. [Suspect]
     Active Substance: RITONAVIR
     Indication: ANTIRETROVIRAL THERAPY
     Dosage: UNK, 1 COURSE, AT A TOTAL DAILY DOSE OF 1, FIRST TRIMESTER
     Route: 048
  7. ZIDOVUDINE. [Suspect]
     Active Substance: ZIDOVUDINE
     Indication: ANTIRETROVIRAL THERAPY
     Dosage: UNK, 1 COURSE, AT A TOTAL DAILY DOSE OF 2, THIRD TRIMESTER FOR { 1 WEEK
     Route: 042
  8. RITONAVIR. [Suspect]
     Active Substance: RITONAVIR
     Dosage: UNK, SECOND COURSE, AT A TOTAL DAILY DOSE OF 1, SECOND TRIMESTER
     Route: 048
  9. EMTRICITABINE/TENOFOVIR [Suspect]
     Active Substance: EMTRICITABINE\TENOFOVIR
     Dosage: UNK, THIRD COURSE, THIRD TIMESTER, AT A TOTAL DAILY DOSE OF ONE
     Route: 048
  10. RITONAVIR. [Suspect]
     Active Substance: RITONAVIR
     Dosage: UNK, THIRD COURSE, AT A TOTAL DAILY DOSE OF 1, THIRD TRIMESTER
     Route: 048
  11. EMTRICITABINE/TENOFOVIR [Suspect]
     Active Substance: EMTRICITABINE\TENOFOVIR
     Indication: ANTIRETROVIRAL THERAPY
     Dosage: UNK, 1 COURSE, FIRST TIMESTER, AT A TOTAL DAILY DOSE OF ONE
     Route: 048
  12. ATAZANAVIR. [Suspect]
     Active Substance: ATAZANAVIR
     Dosage: UNK, SECOND COURSE, SECOND TRIMESTER, AT A TOTAL DAILY DOSE OF 1
     Route: 048

REACTIONS (2)
  - No adverse event [Unknown]
  - Exposure during pregnancy [Unknown]
